FAERS Safety Report 10548191 (Version 1)
Quarter: 2014Q4

REPORT INFORMATION
  Report Type: Spontaneous
  Country: US (occurrence: None)
  Receive Date: 20141027
  Receipt Date: 20141027
  Transmission Date: 20150529
  Serious: Yes (Other)
  Sender: FDA-Public Use
  Company Number: None

PATIENT
  Age: 40 Year
  Sex: Female
  Weight: 79.38 kg

DRUGS (1)
  1. MIRCETTE [Suspect]
     Active Substance: DESOGESTREL\ETHINYL ESTRADIOL
     Indication: CONTRACEPTION
     Dosage: 1 PILL (21/5) ONCE DAILY TAKEN BY MOUTH
     Route: 048
     Dates: start: 20011110, end: 20140820

REACTIONS (10)
  - Tachycardia [None]
  - Dizziness [None]
  - Product quality issue [None]
  - Diarrhoea [None]
  - Paraesthesia [None]
  - Lip swelling [None]
  - Nausea [None]
  - Palpitations [None]
  - Muscle spasms [None]
  - Feeling hot [None]

NARRATIVE: CASE EVENT DATE: 20140820
